FAERS Safety Report 17462786 (Version 4)
Quarter: 2020Q2

REPORT INFORMATION
  Report Type: Report from Study
  Country: CA (occurrence: CA)
  Receive Date: 20200226
  Receipt Date: 20200514
  Transmission Date: 20200713
  Serious: Yes (Hospitalization, Other)
  Sender: FDA-Public Use
  Company Number: CA-JNJFOC-20200219423

PATIENT
  Age: 63 Year
  Sex: Female
  Weight: 74 kg

DRUGS (3)
  1. STELARA [Suspect]
     Active Substance: USTEKINUMAB
     Route: 058
  2. STELARA [Suspect]
     Active Substance: USTEKINUMAB
     Indication: CROHN^S DISEASE
     Route: 058
     Dates: start: 20190828
  3. POLYSPORIN [Suspect]
     Active Substance: BACITRACIN ZINC\POLYMYXIN B SULFATE
     Indication: ANKLE FRACTURE
     Route: 065

REACTIONS (12)
  - Ankle fracture [Not Recovered/Not Resolved]
  - Rash [Recovering/Resolving]
  - Swelling [Unknown]
  - Diarrhoea [Unknown]
  - Rhinorrhoea [Unknown]
  - Product use issue [Unknown]
  - Crohn^s disease [Unknown]
  - Hepatic cirrhosis [Unknown]
  - Off label use [Unknown]
  - Clostridium difficile infection [Unknown]
  - Blood potassium decreased [Unknown]
  - Joint swelling [Unknown]

NARRATIVE: CASE EVENT DATE: 2020
